FAERS Safety Report 23286020 (Version 3)
Quarter: 2024Q1

REPORT INFORMATION
  Report Type: Report from Study
  Country: FR (occurrence: FR)
  Receive Date: 20231212
  Receipt Date: 20240108
  Transmission Date: 20240410
  Serious: Yes (Hospitalization, Other)
  Sender: FDA-Public Use
  Company Number: FR-CELLTRION INC.-2023FR023341

PATIENT

DRUGS (3)
  1. BEVACIZUMAB [Suspect]
     Active Substance: BEVACIZUMAB
     Indication: Non-small cell lung cancer
     Dosage: EVERY 3 WEEKS; DATE OF LAST ADMINISTRATION OF STUDY TREATMENT WAS: 05/OCT/2023)
     Route: 042
     Dates: start: 20230601, end: 20231005
  2. ATEZOLIZUMAB [Suspect]
     Active Substance: ATEZOLIZUMAB
     Indication: Non-small cell lung cancer
     Dosage: EVERY 3 WEEKS; DATE OF LAST ADMINISTRATION OF STUDY TREATMENT WAS: 05/OCT/2023)
     Route: 042
     Dates: start: 20230601, end: 20231005
  3. PACLITAXEL [Suspect]
     Active Substance: PACLITAXEL
     Indication: Non-small cell lung cancer
     Dosage: EVERY 3 WEEKS; DATE OF LAST ADMINISTRATION OF STUDY TREATMENT WAS: 05/OCT/2023)
     Route: 042
     Dates: start: 20230601, end: 20231005

REACTIONS (2)
  - Toxic skin eruption [Not Recovered/Not Resolved]
  - Lichenoid keratosis [Recovered/Resolved]

NARRATIVE: CASE EVENT DATE: 20231027
